FAERS Safety Report 6290868-9 (Version None)
Quarter: 2009Q3

REPORT INFORMATION
  Report Type: 
  Country: None (occurrence: None)
  Receive Date: 20090730
  Receipt Date: 20070521
  Transmission Date: 20100115
  Serious: Yes (Other)
  Sender: FDA-Public Use
  Company Number: US-ASTRAZENECA-2006UW08396

PATIENT
  Age: 17458 Day
  Sex: Male
  Weight: 123.7 kg

DRUGS (26)
  1. SEROQUEL [Suspect]
     Indication: DEPRESSION
     Dosage: 25 MG - 500 MG
     Route: 048
     Dates: start: 20040301
  2. SEROQUEL [Suspect]
     Indication: BIPOLAR DISORDER
     Dosage: 25 MG - 500 MG
     Route: 048
     Dates: start: 20040301
  3. SEROQUEL [Suspect]
     Indication: HYPERTENSION
     Dosage: 25 MG - 500 MG
     Route: 048
     Dates: start: 20040301
  4. SEROQUEL [Suspect]
     Indication: SLEEP APNOEA SYNDROME
     Dosage: 25 MG - 500 MG
     Route: 048
     Dates: start: 20040301
  5. SEROQUEL [Suspect]
     Indication: INSOMNIA
     Dosage: 25 MG - 500 MG
     Route: 048
     Dates: start: 20040301
  6. SEROQUEL [Suspect]
     Dosage: 100 TO 500 MG
     Route: 048
  7. SEROQUEL [Suspect]
     Dosage: 100 TO 500 MG
     Route: 048
  8. SEROQUEL [Suspect]
     Dosage: 100 TO 500 MG
     Route: 048
  9. SEROQUEL [Suspect]
     Dosage: 100 TO 500 MG
     Route: 048
  10. SEROQUEL [Suspect]
     Dosage: 100 TO 500 MG
     Route: 048
  11. LAMICTAL [Concomitant]
  12. RESTORIL [Concomitant]
     Indication: SLEEP DISORDER
     Dates: start: 19960908
  13. ZOLOFT [Concomitant]
     Indication: DEPRESSION
     Dosage: 50 MG - 100 MG
     Dates: start: 20051028
  14. LAMICTAL [Concomitant]
     Indication: DEPRESSION
     Dosage: 25 MG - 200 MG
     Dates: start: 20051012
  15. LAMICTAL [Concomitant]
     Indication: BIPOLAR DISORDER
     Dosage: 25 MG - 200 MG
     Dates: start: 20051012
  16. LAMICTAL [Concomitant]
     Indication: MANIA
     Dosage: 25 MG - 200 MG
     Dates: start: 20051012
  17. HYDROCHLOROTHIAZIDE [Concomitant]
     Indication: BLOOD PRESSURE
     Dosage: 12.5 MG - 25 MG
     Dates: start: 20040609
  18. LISINOPRIL [Concomitant]
     Indication: HYPERTENSION
     Dosage: 10 MG - 20 MG
     Route: 048
     Dates: start: 20040301
  19. LIPITOR [Concomitant]
     Indication: DYSLIPIDAEMIA
     Dosage: 10 MG - 40 MG
     Dates: start: 20040907
  20. LIPITOR [Concomitant]
     Indication: BLOOD CHOLESTEROL
     Dosage: 10 MG - 40 MG
     Dates: start: 20040907
  21. NITROSTAT [Concomitant]
     Indication: CHEST PAIN
     Dosage: 0.4 MG EVERY 5 MINS
     Dates: start: 20050907
  22. NORVASC [Concomitant]
     Indication: BLOOD PRESSURE
     Dosage: 2.5 MG - 10 MG
     Dates: start: 20040831
  23. NORVASC [Concomitant]
     Indication: CARDIAC DISORDER
     Dosage: 2.5 MG - 10 MG
     Dates: start: 20040831
  24. TEGRETOL [Concomitant]
     Dates: start: 20070716
  25. MIRAPEX [Concomitant]
     Indication: RESTLESS LEGS SYNDROME
     Dates: start: 20051114, end: 20060201
  26. FLUOXETINE [Concomitant]
     Indication: STRESS
     Dosage: 20 MG, 3 TABLETS AT NIGHT
     Dates: start: 20041102

REACTIONS (6)
  - DIABETES MELLITUS [None]
  - DIABETES MELLITUS INADEQUATE CONTROL [None]
  - DIABETIC NEUROPATHY [None]
  - HYPOGLYCAEMIA [None]
  - TYPE 1 DIABETES MELLITUS [None]
  - TYPE 2 DIABETES MELLITUS [None]
